FAERS Safety Report 12089411 (Version 2)
Quarter: 2016Q1

REPORT INFORMATION
  Report Type: Spontaneous
  Country: IT (occurrence: IT)
  Receive Date: 20160218
  Receipt Date: 20160310
  Transmission Date: 20160526
  Serious: Yes (Other)
  Sender: FDA-Public Use
  Company Number: IT-JNJFOC-20160213497

PATIENT
  Age: 53 Year
  Sex: Female
  Weight: 70 kg

DRUGS (7)
  1. HALDOL [Suspect]
     Active Substance: HALOPERIDOL
     Indication: BIPOLAR DISORDER
     Dosage: 1 BOTTLE
     Route: 048
     Dates: start: 20160214, end: 20160214
  2. BROMAZEPAM [Suspect]
     Active Substance: BROMAZEPAM
     Indication: BIPOLAR DISORDER
     Dosage: 2 BOTTLES
     Route: 048
     Dates: start: 20160214, end: 20160214
  3. LORAZEPAM. [Suspect]
     Active Substance: LORAZEPAM
     Indication: BIPOLAR DISORDER
     Dosage: 10 TABLETS OF 2.5 MG
     Route: 048
     Dates: start: 20160214, end: 20160214
  4. LERCANIDIPINE [Suspect]
     Active Substance: LERCANIDIPINE
     Indication: BIPOLAR DISORDER
     Dosage: 30 TABLETS OF 10 MG
     Route: 048
     Dates: start: 20160214, end: 20160214
  5. RAMIPRIL. [Suspect]
     Active Substance: RAMIPRIL
     Indication: BIPOLAR DISORDER
     Dosage: 16 TABLETS OF 2.5MG
     Route: 048
     Dates: start: 20160214, end: 20160214
  6. HALDOL [Suspect]
     Active Substance: HALOPERIDOL
     Indication: BIPOLAR DISORDER
     Route: 048
  7. OLANZAPINE. [Suspect]
     Active Substance: OLANZAPINE
     Indication: BIPOLAR DISORDER
     Dosage: 28 TABLETS OF 5 MG
     Route: 048
     Dates: start: 20160214, end: 20160214

REACTIONS (4)
  - Self injurious behaviour [Recovered/Resolved]
  - Hypotension [Recovered/Resolved]
  - Intentional overdose [Recovered/Resolved]
  - Coma [Recovered/Resolved]

NARRATIVE: CASE EVENT DATE: 20160214
